FAERS Safety Report 11067358 (Version 3)
Quarter: 2015Q2

REPORT INFORMATION
  Report Type: Spontaneous
  Country: DE (occurrence: DE)
  Receive Date: 20150426
  Receipt Date: 20150515
  Transmission Date: 20150821
  Serious: Yes (Other)
  Sender: FDA-Public Use
  Company Number: DE-PFIZER INC-2015089927

PATIENT
  Age: 36 Year
  Sex: Female
  Weight: 60 kg

DRUGS (13)
  1. FERRO RATIOPHARM [Concomitant]
     Dosage: 50 MG, ALTERNATE DAY
  2. REVATIO [Suspect]
     Active Substance: SILDENAFIL CITRATE
     Dosage: 20 MG 3X/DAY
     Dates: start: 201404
  3. REVATIO [Suspect]
     Active Substance: SILDENAFIL CITRATE
     Dosage: 20 MG 3X/DAY (2 ORIGINAL TAB, 1 RE-IMPORTED
     Dates: start: 20150223, end: 20150225
  4. REVATIO [Suspect]
     Active Substance: SILDENAFIL CITRATE
     Dosage: 20 MG RE-IMPORT 3X/DAY
     Dates: start: 20150226, end: 20150228
  5. REVATIO [Suspect]
     Active Substance: SILDENAFIL CITRATE
     Dosage: 20 MG, 3X/DAY (REIMPORT IN THE MORNING, STARTING AT NOON ORIGINAL)
     Dates: start: 20150228
  6. L-THYROXIN [Concomitant]
     Active Substance: LEVOTHYROXINE SODIUM
     Dosage: 75 ?G, UNK
  7. ZYPREXA [Concomitant]
     Active Substance: OLANZAPINE
     Dosage: 7.5 MG, UNK
  8. OXYGEN. [Concomitant]
     Active Substance: OXYGEN
     Dosage: 1.5-2 L AT NIGHT
  9. NASONEX [Concomitant]
     Active Substance: MOMETASONE FUROATE
  10. AGNUS CASTUS [Concomitant]
     Dosage: 1 DF, 1X/DAY
  11. TRACLEER [Concomitant]
     Active Substance: BOSENTAN\BOSENTAN MONOHYDRATE
     Dosage: 125 MG, 2X/DAY
  12. MG VERLA DRAGEES [Concomitant]
     Dosage: 1 DF, 3X/DAY
  13. VIGANTOLETTEN [Concomitant]
     Active Substance: CHOLECALCIFEROL
     Dosage: 500 IU, UNK

REACTIONS (8)
  - Suspected counterfeit product [Recovered/Resolved]
  - Drug ineffective [Recovered/Resolved]
  - Shock [Recovered/Resolved]
  - Dyspnoea [Recovered/Resolved]
  - Skin discolouration [Recovered/Resolved]
  - Chest pain [Recovered/Resolved]
  - Anxiety [Recovered/Resolved]
  - Headache [Recovered/Resolved]

NARRATIVE: CASE EVENT DATE: 201502
